FAERS Safety Report 9548914 (Version 1)
Quarter: 2013Q3

REPORT INFORMATION
  Report Type: Spontaneous
  Country: US (occurrence: US)
  Receive Date: 20130924
  Receipt Date: 20130924
  Transmission Date: 20140515
  Serious: No
  Sender: FDA-Public Use
  Company Number: US-009507513-1207USA004421

PATIENT
  Sex: Female
  Weight: 104.31 kg

DRUGS (1)
  1. IMPLANON [Suspect]
     Indication: CONTRACEPTION
     Dosage: 1 DF, UNK
     Route: 059
     Dates: start: 20100928

REACTIONS (6)
  - Dyspnoea [Unknown]
  - Chest pain [Unknown]
  - Injection site pain [Unknown]
  - Pain [Unknown]
  - Headache [Unknown]
  - Weight increased [Unknown]
